FAERS Safety Report 7311005-5 (Version None)
Quarter: 2011Q1

REPORT INFORMATION
  Report Type: 
  Country: None (occurrence: None)
  Receive Date: 20110224
  Receipt Date: 20110211
  Transmission Date: 20110831
  Serious: Yes (Hospitalization)
  Sender: FDA-Public Use
  Company Number: PHHY2010AU64683

PATIENT
  Sex: Female

DRUGS (1)
  1. CLOZARIL [Suspect]
     Dosage: 500 MG
     Dates: start: 20061103

REACTIONS (2)
  - GENERAL PHYSICAL HEALTH DETERIORATION [None]
  - MENTAL IMPAIRMENT [None]
